FAERS Safety Report 6765870-0 (Version None)
Quarter: 2010Q2

REPORT INFORMATION
  Report Type: 
  Country: None (occurrence: None)
  Receive Date: 20100611
  Receipt Date: 20100607
  Transmission Date: 20101027
  Serious: Yes (Life-Threatening)
  Sender: FDA-Public Use
  Company Number: BE-ASTRAZENECA-2010SE26608

PATIENT
  Sex: Female
  Weight: 106 kg

DRUGS (1)
  1. MARCAINE [Suspect]
     Indication: CAESAREAN SECTION
     Dosage: 10 MGR, DAILY DOSE
     Route: 037
     Dates: start: 20100607

REACTIONS (2)
  - DRUG INEFFECTIVE [None]
  - PRE-ECLAMPSIA [None]
